FAERS Safety Report 6069124-X (Version None)
Quarter: 2009Q1

REPORT INFORMATION
  Report Type: 
  Country: None (occurrence: None)
  Receive Date: 20090206
  Receipt Date: 20090127
  Transmission Date: 20090719
  Serious: No
  Sender: FDA-Public Use
  Company Number: US-ELI_LILLY_AND_COMPANY-US200812002073

PATIENT
  Age: 40 Year
  Sex: Male

DRUGS (4)
  1. PROZAC [Suspect]
     Indication: MAJOR DEPRESSION
     Dosage: 10 MG, UNKNOWN
     Route: 065
  2. PROZAC [Suspect]
     Dosage: 20 MG, UNKNOWN
     Route: 065
  3. NSAID'S [Concomitant]
     Dosage: UNK, UNKNOWN
     Route: 065
  4. TYLENOL /00724201/ [Concomitant]
     Dosage: UNK, UNKNOWN
     Route: 065

REACTIONS (1)
  - NO ADVERSE EVENT [None]
